FAERS Safety Report 8975576 (Version 1)
Quarter: 2012Q4

REPORT INFORMATION
  Report Type: 
  Country: US (occurrence: US)
  Receive Date: 20121219
  Receipt Date: 20121219
  Transmission Date: 20130627
  Serious: No
  Sender: FDA-Public Use
  Company Number: US-AMGEN-USASP2012072715

PATIENT
  Age: 77 Year
  Sex: Female

DRUGS (6)
  1. PROLIA [Suspect]
     Indication: OSTEOPOROSIS POSTMENOPAUSAL
     Dosage: UNK
     Dates: start: 201109
  2. VAGIFEM [Concomitant]
     Dosage: UNK UNK, 2 times/wk
  3. MULTIVITAMIN                       /00097801/ [Concomitant]
     Dosage: UNK UNK, qd
  4. ALEVE [Concomitant]
     Indication: PAIN
     Dosage: UNK UNK, tid
  5. ALEVE [Concomitant]
     Indication: ARTHRITIS
  6. CALCIUM + VITAMIN D [Concomitant]
     Dosage: 600 mg, tid

REACTIONS (4)
  - Groin pain [Not Recovered/Not Resolved]
  - Gait disturbance [Not Recovered/Not Resolved]
  - Arthralgia [Not Recovered/Not Resolved]
  - Pain in extremity [Not Recovered/Not Resolved]
